FAERS Safety Report 5698780-0 (Version None)
Quarter: 2008Q2

REPORT INFORMATION
  Report Type: 
  Country: None (occurrence: None)
  Receive Date: 20080404
  Receipt Date: 20080319
  Transmission Date: 20081010
  Serious: Yes (Disabling, Other)
  Sender: FDA-Public Use
  Company Number: GXKR2008CA02451

PATIENT
  Sex: Male

DRUGS (2)
  1. PREDNISOLONE [Suspect]
     Indication: CATARACT OPERATION
     Dosage: OPTHALMIC
     Route: 047
     Dates: start: 20060101
  2. METHYLENE BLUE+NAPHAZOLINE (NGX)(NAPHAZOLINE) UNKNOWN [Suspect]
     Dosage: OPHTHALMIC
     Route: 047
     Dates: start: 20060101

REACTIONS (2)
  - BLINDNESS [None]
  - DRUG DISPENSING ERROR [None]
